FAERS Safety Report 15539695 (Version 1)
Quarter: 2018Q4

REPORT INFORMATION
  Report Type: Spontaneous
  Country: US (occurrence: US)
  Receive Date: 20181023
  Receipt Date: 20181023
  Transmission Date: 20190205
  Serious: No
  Sender: FDA-Public Use
  Company Number: US-TEVA-2018-US-965039

PATIENT
  Age: 66 Year
  Sex: Female

DRUGS (1)
  1. ACTAVIS^ LISINOPRIL [Suspect]
     Active Substance: LISINOPRIL
     Route: 065

REACTIONS (1)
  - Ventricular extrasystoles [Unknown]
